FAERS Safety Report 4317999-4 (Version None)
Quarter: 2004Q1

REPORT INFORMATION
  Report Type: 
  Country: None (occurrence: None)
  Receive Date: 20040316
  Receipt Date: 20040305
  Transmission Date: 20041129
  Serious: Yes (Death)
  Sender: FDA-Public Use
  Company Number: PHBS2004US03213

PATIENT
  Age: 53 Year
  Sex: Female

DRUGS (3)
  1. CYCLOSPORINE [Suspect]
     Indication: LUNG TRANSPLANT
     Route: 065
     Dates: start: 19930101
  2. AZATHIOPRINE [Suspect]
     Indication: LUNG TRANSPLANT
     Route: 065
     Dates: start: 19930101
  3. PREDNISONE [Suspect]
     Indication: LUNG TRANSPLANT
     Route: 065
     Dates: start: 19930101

REACTIONS (3)
  - PELVIC PAIN [None]
  - T-CELL LYMPHOMA [None]
  - VAGINAL PAIN [None]
